FAERS Safety Report 4946715-8 (Version None)
Quarter: 2006Q1

REPORT INFORMATION
  Report Type: 
  Country: None (occurrence: None)
  Receive Date: 20060201
  Receipt Date: 20051215
  Transmission Date: 20060701
  Serious: No
  Sender: FDA-Public Use
  Company Number: 2005PV005932

PATIENT
  Age: 48 Year
  Sex: Female

DRUGS (3)
  1. BYETTA [Suspect]
     Dosage: SEE IMAGE
     Route: 058
     Dates: start: 20050101, end: 20051205
  2. BYETTA [Suspect]
     Dosage: SEE IMAGE
     Route: 058
     Dates: start: 20051206
  3. AMARYL [Concomitant]

REACTIONS (4)
  - CONTUSION [None]
  - FEELING ABNORMAL [None]
  - INJECTION SITE BRUISING [None]
  - NAUSEA [None]
